FAERS Safety Report 8524550 (Version 3)
Quarter: 2013Q1

REPORT INFORMATION
  Report Type: Spontaneous
  Country: US (occurrence: US)
  Receive Date: 20120420
  Receipt Date: 20130129
  Transmission Date: 20140127
  Serious: Yes (Life-Threatening)
  Sender: FDA-Public Use
  Company Number: US-ROCHE-1058484

PATIENT
  Age: 68 Year
  Sex: Female
  Weight: 51 kg

DRUGS (8)
  1. XOLAIR [Suspect]
     Indication: ASTHMA
     Route: 058
     Dates: start: 20060419, end: 20120216
  2. ADVAIR [Concomitant]
     Indication: ASTHMA
     Dosage: INHALED
     Route: 065
     Dates: start: 20100214
  3. MAXAIR [Concomitant]
     Indication: ASTHMA
     Route: 065
     Dates: start: 20090130
  4. SINGULAIR [Concomitant]
     Indication: ASTHMA
     Dosage: AT NIGHT
     Route: 048
     Dates: start: 2008
  5. OMEPRAZOLE [Concomitant]
     Indication: GASTROOESOPHAGEAL REFLUX DISEASE
     Route: 048
     Dates: start: 20090429
  6. LEVOTHROID [Concomitant]
     Indication: THYROID DISORDER
     Route: 048
  7. TRAMADOL HCL [Concomitant]
     Indication: PAIN
     Dosage: AS NEEDED
     Route: 048
     Dates: start: 20120308
  8. AVAPRO [Concomitant]
     Indication: HYPERTENSION
     Route: 048
     Dates: start: 201005

REACTIONS (4)
  - Tonsil cancer [Unknown]
  - Tonsillar disorder [Unknown]
  - Tonsillar atrophy [Unknown]
  - Lymphatic disorder [Unknown]
